FAERS Safety Report 20973164 (Version 4)
Quarter: 2022Q3

REPORT INFORMATION
  Report Type: Spontaneous
  Country: US (occurrence: US)
  Receive Date: 20220617
  Receipt Date: 20220822
  Transmission Date: 20221027
  Serious: Yes (Hospitalization, Other)
  Sender: FDA-Public Use
  Company Number: US-Blueprint Medicines Corporation-195

PATIENT
  Sex: Female

DRUGS (6)
  1. AYVAKIT [Suspect]
     Active Substance: AVAPRITINIB
     Indication: Systemic mastocytosis
     Dosage: 50MG (MONDAY, WEDNESDAY, FRIDAY ONLY)
     Route: 048
     Dates: start: 20210923
  2. AYVAKIT [Suspect]
     Active Substance: AVAPRITINIB
     Dosage: MON., WED., FRI. ONLY
     Route: 048
  3. AMIODARONE [Concomitant]
     Active Substance: AMIODARONE
     Indication: Product used for unknown indication
     Route: 065
  4. JARDIANCE [Concomitant]
     Active Substance: EMPAGLIFLOZIN
     Indication: Product used for unknown indication
     Route: 065
  5. FUROSEMIDE [Concomitant]
     Active Substance: FUROSEMIDE
     Indication: Product used for unknown indication
     Route: 065
  6. LEVOTHYROXINE [Concomitant]
     Active Substance: LEVOTHYROXINE
     Indication: Product used for unknown indication
     Route: 065

REACTIONS (7)
  - Cardiac failure congestive [Unknown]
  - Pulmonary oedema [Unknown]
  - Thyroid disorder [Unknown]
  - Fluid retention [Unknown]
  - Product dose omission issue [Unknown]
  - Cardiac disorder [Unknown]
  - Off label use [Unknown]
